FAERS Safety Report 18057050 (Version 1)
Quarter: 2020Q3

REPORT INFORMATION
  Report Type: Spontaneous
  Country: US (occurrence: US)
  Receive Date: 20200722
  Receipt Date: 20200722
  Transmission Date: 20201103
  Serious: No
  Sender: FDA-Public Use
  Company Number: US-DERMIRA, INC.-US-2020DER000158

PATIENT
  Age: 20 Year
  Sex: Female
  Weight: 57.14 kg

DRUGS (4)
  1. GLYCOPYRROLATE                     /00196201/ [Concomitant]
     Active Substance: GLYCOPYRRONIUM
     Indication: HYPERHIDROSIS
     Dosage: 50 OR 100
     Route: 048
  2. NEXPLANON [Concomitant]
     Active Substance: ETONOGESTREL
     Indication: CONTRACEPTION
     Dosage: UNK
  3. SPIRONOLACTONE. [Concomitant]
     Active Substance: SPIRONOLACTONE
     Indication: ACNE
     Dosage: 100 MG, QD
     Route: 048
  4. QBREXZA [Suspect]
     Active Substance: GLYCOPYRRONIUM TOSYLATE
     Indication: HYPERHIDROSIS
     Dosage: UNK, QD
     Route: 061
     Dates: start: 20200618

REACTIONS (2)
  - Mydriasis [Not Recovered/Not Resolved]
  - Off label use [Unknown]

NARRATIVE: CASE EVENT DATE: 20200618
